FAERS Safety Report 21520034 (Version 2)
Quarter: 2022Q4

REPORT INFORMATION
  Report Type: Spontaneous
  Country: JP (occurrence: JP)
  Receive Date: 20221028
  Receipt Date: 20221111
  Transmission Date: 20230113
  Serious: Yes (Other)
  Sender: FDA-Public Use
  Company Number: JP-SUN PHARMACEUTICAL INDUSTRIES LTD-2022RR-348395

PATIENT
  Sex: Female

DRUGS (4)
  1. PROGRAF [Suspect]
     Active Substance: TACROLIMUS
     Indication: Polyarthritis
     Dosage: 0.013 MILLIGRAM/KILOGRAM, DAILY
     Route: 065
  2. PREDONINE [Suspect]
     Active Substance: PREDNISOLONE
     Indication: Polyarthritis
     Dosage: 0.25 MILLIGRAM/KILOGRAM, DAILY
     Route: 065
  3. AZULFIDINE [Suspect]
     Active Substance: SULFASALAZINE
     Indication: Polyarthritis
     Dosage: UNK
     Route: 065
  4. BUCILLAMINE [Suspect]
     Active Substance: BUCILLAMINE
     Indication: Polyarthritis
     Dosage: UNK
     Route: 065

REACTIONS (3)
  - Epstein-Barr virus infection [Unknown]
  - Cytopenia [Unknown]
  - Drug intolerance [Unknown]
